FAERS Safety Report 7308792-9 (Version None)
Quarter: 2011Q1

REPORT INFORMATION
  Report Type: 
  Country: None (occurrence: None)
  Receive Date: 20110223
  Receipt Date: 20110216
  Transmission Date: 20110831
  Serious: Yes (Other)
  Sender: FDA-Public Use
  Company Number: PHHY2011US12916

PATIENT
  Sex: Female

DRUGS (4)
  1. MIACALCIN [Suspect]
     Dosage: ONCE A DAY
     Route: 045
  2. HYDROXYUREA [Concomitant]
  3. ASPIRIN [Concomitant]
     Dosage: 81 MG, EVERY OTHER DAY
  4. CALCIUM 600 WITH VITAMIN D [Concomitant]

REACTIONS (2)
  - HYPOAESTHESIA [None]
  - CARPAL TUNNEL SYNDROME [None]
